FAERS Safety Report 22391768 (Version 2)
Quarter: 2023Q2

REPORT INFORMATION
  Report Type: Other
  Country: GB (occurrence: GB)
  Receive Date: 20230601
  Receipt Date: 20230610
  Transmission Date: 20230721
  Serious: Yes (Other)
  Sender: FDA-Public Use
  Company Number: GB-MACLEODS PHARMA EU LTD-MAC2023041169

PATIENT

DRUGS (7)
  1. TENOFOVIR [Suspect]
     Active Substance: TENOFOVIR
     Indication: HIV infection
     Dosage: UNK UNK, QD (END DATE: UNKNOWN DATE IN 2013)
     Route: 048
     Dates: start: 2013
  2. TENOFOVIR [Suspect]
     Active Substance: TENOFOVIR
     Dosage: UNK UNK, QD
     Route: 048
     Dates: start: 2013
  3. EFAVIRENZ [Suspect]
     Active Substance: EFAVIRENZ
     Indication: HIV infection
     Dosage: UNK UNK, QD (END DATE UNKNOWN DATE IN 2013)
     Route: 048
  4. EMTRICITABINE [Suspect]
     Active Substance: EMTRICITABINE
     Indication: HIV infection
     Dosage: UNK UNK, QD (END DATE: UNKNOWN DATE IN 2013)
     Route: 048
     Dates: start: 2013
  5. EMTRICITABINE [Suspect]
     Active Substance: EMTRICITABINE
     Dosage: UNK, QD
     Route: 048
     Dates: start: 2013
  6. RILPIVIRINE [Suspect]
     Active Substance: RILPIVIRINE
     Indication: HIV infection
     Dosage: UNK, QD
     Route: 048
     Dates: start: 2013
  7. EMTRICITABINE\RILPIVIRINE\TENOFOVIR DISOPROXIL FUMARATE [Suspect]
     Active Substance: EMTRICITABINE\RILPIVIRINE\TENOFOVIR DISOPROXIL FUMARATE
     Indication: HIV infection
     Dosage: UNK (START DATE: UNKNOWN DATE IN 2013)
     Route: 048

REACTIONS (4)
  - Diabetes mellitus [Not Recovered/Not Resolved]
  - Weight increased [Unknown]
  - Agitation [Unknown]
  - Insomnia [Recovered/Resolved]
